FAERS Safety Report 7906172-6 (Version None)
Quarter: 2011Q4

REPORT INFORMATION
  Report Type: 
  Country: None (occurrence: None)
  Receive Date: 20111110
  Receipt Date: 20111031
  Transmission Date: 20120403
  Serious: Yes (Death)
  Sender: FDA-Public Use
  Company Number: US-CELGENEUS-163-21880-11102081

PATIENT
  Sex: Female

DRUGS (28)
  1. REVLIMID [Suspect]
     Indication: MYELODYSPLASTIC SYNDROME
     Dosage: 5 MILLIGRAM
     Route: 048
     Dates: start: 20110801, end: 20111001
  2. CALCIUM [Concomitant]
     Dosage: 1200
     Route: 065
  3. POTASSIUM ACETATE [Concomitant]
     Route: 065
  4. FISH OIL [Concomitant]
     Dosage: 200MG-144MG-216MG
     Route: 048
     Dates: start: 20100407
  5. ADVAIR DISKUS 100/50 [Concomitant]
     Dosage: 100MCG/50MCG
     Route: 055
     Dates: start: 20100407
  6. SPIRIVA [Concomitant]
     Dosage: 18 MICROGRAM
     Route: 055
     Dates: start: 20100407
  7. LASIX [Concomitant]
     Dosage: 80 MILLIGRAM
     Route: 048
     Dates: start: 20100407
  8. VITAMIN B COMPLEX CAP [Concomitant]
     Route: 048
     Dates: start: 20110323
  9. ZITHROMAX [Concomitant]
     Dosage: 250 MILLIGRAM
     Route: 048
     Dates: start: 20101004
  10. CITRACAL + D [Concomitant]
     Dosage: 315MG-200 UNIT
     Route: 048
     Dates: start: 20100407
  11. LANOXIN [Concomitant]
     Dosage: 125 MICROGRAM
     Route: 048
     Dates: start: 20100407
  12. VITAMIN B COMPLEX CAP [Concomitant]
     Dosage: 100
     Route: 065
  13. XANAX [Concomitant]
     Indication: ANXIETY
     Dosage: 1-2
     Route: 048
     Dates: start: 20111005
  14. FAMOTIDINE [Concomitant]
     Dosage: 20 MILLIGRAM
     Route: 048
     Dates: start: 20100407
  15. DILTIAZEM HCL CR [Concomitant]
     Route: 065
  16. SIMVASTATIN [Concomitant]
     Dosage: 20 MILLIGRAM
     Route: 048
     Dates: start: 20100407
  17. FUROSEMIDE [Concomitant]
     Route: 065
  18. XOPENEX [Concomitant]
     Dosage: 1.25MG/0.5ML
     Route: 065
     Dates: start: 20100407
  19. CENTRUM [Concomitant]
     Dosage: 0.4-162MG-18MG
     Route: 048
     Dates: start: 20100407
  20. KLOR-CON [Concomitant]
     Dosage: 20 MILLIEQUIVALENTS
     Route: 048
     Dates: start: 20110518
  21. LEVOTHYROXINE SODIUM [Concomitant]
     Dosage: 25 MICROGRAM
     Route: 048
     Dates: start: 20100407
  22. LISINOPRIL [Concomitant]
     Dosage: 40 MILLIGRAM
     Route: 048
     Dates: start: 20100407
  23. PRU-VATE [Concomitant]
     Dosage: 21-7 151MG-200MG-1MG-0.8MG
     Route: 048
     Dates: start: 20111025
  24. VITAMIN B-12 [Concomitant]
     Dosage: 5000MCG-100MCG
     Route: 060
     Dates: start: 20110323
  25. VITAMIN B COMPLEX CAP [Concomitant]
     Dosage: 1
     Route: 048
     Dates: start: 20100407
  26. CARDIZEM [Concomitant]
     Dosage: 240 MILLIGRAM
     Route: 048
     Dates: start: 20110630
  27. ISOSORBIDE MONONITRATE [Concomitant]
     Dosage: 30 MILLIGRAM
     Route: 048
     Dates: start: 20100407
  28. METOLAZONE [Concomitant]
     Dosage: 5 MILLIGRAM
     Route: 048
     Dates: start: 20100224

REACTIONS (1)
  - MYELODYSPLASTIC SYNDROME [None]
